FAERS Safety Report 9539177 (Version 1)
Quarter: 2013Q3

REPORT INFORMATION
  Report Type: Spontaneous
  Country: BR (occurrence: BR)
  Receive Date: 20130920
  Receipt Date: 20130920
  Transmission Date: 20140515
  Serious: Yes (Hospitalization, Other)
  Sender: FDA-Public Use
  Company Number: BR-SANOFI-AVENTIS-2013SA091532

PATIENT
  Age: 51 Year
  Sex: Female
  Weight: 87 kg

DRUGS (6)
  1. LANTUS [Suspect]
     Indication: TYPE 2 DIABETES MELLITUS
     Route: 058
     Dates: start: 2010
  2. CRESTOR [Concomitant]
     Indication: PROPHYLAXIS
     Route: 048
  3. CORUS [Concomitant]
     Indication: HYPERTENSION
     Dosage: 1 TABLET DAILY BEFORE SLEEP
     Route: 048
  4. ATENOLOL [Concomitant]
     Indication: HYPERTENSION
     Dosage: 1 TABLET DAILY BEFORE SLEEP
     Route: 048
  5. JANUMET [Concomitant]
     Route: 048
  6. GLIFAGE [Concomitant]
     Indication: TYPE 2 DIABETES MELLITUS
     Route: 048

REACTIONS (4)
  - Infarction [Recovered/Resolved]
  - Chest pain [Recovered/Resolved]
  - Dyspnoea [Recovered/Resolved]
  - Thrombosis [Not Recovered/Not Resolved]
